FAERS Safety Report 11030953 (Version 1)
Quarter: 2015Q2

REPORT INFORMATION
  Report Type: Spontaneous
  Country: US (occurrence: None)
  Receive Date: 20150414
  Receipt Date: 20150414
  Transmission Date: 20150821
  Serious: No
  Sender: FDA-Public Use
  Company Number: None

PATIENT
  Age: 73 Year
  Sex: Male

DRUGS (1)
  1. LATANOPROST. [Suspect]
     Active Substance: LATANOPROST
     Indication: OPEN ANGLE GLAUCOMA
     Route: 047
     Dates: start: 20130407, end: 20141201

REACTIONS (3)
  - Instillation site erythema [None]
  - Product quality issue [None]
  - Eye swelling [None]

NARRATIVE: CASE EVENT DATE: 20141129
